FAERS Safety Report 14454526 (Version 1)
Quarter: 2018Q1

REPORT INFORMATION
  Report Type: Spontaneous
  Country: US (occurrence: US)
  Receive Date: 20180128
  Receipt Date: 20180128
  Transmission Date: 20180509
  Serious: Yes (Other)
  Sender: FDA-Public Use
  Company Number: None

PATIENT
  Age: 63 Year
  Sex: Male
  Weight: 78.75 kg

DRUGS (1)
  1. CIALIS [Suspect]
     Active Substance: TADALAFIL
     Indication: BENIGN PROSTATIC HYPERPLASIA

REACTIONS (6)
  - Retinal detachment [None]
  - Photopsia [None]
  - Retinal tear [None]
  - Visual impairment [None]
  - Vitreous floaters [None]
  - Blindness [None]

NARRATIVE: CASE EVENT DATE: 20180113
